FAERS Safety Report 5527596-0 (Version None)
Quarter: 2007Q4

REPORT INFORMATION
  Report Type: 
  Country: None (occurrence: None)
  Receive Date: 20071128
  Receipt Date: 20071119
  Transmission Date: 20080405
  Serious: Yes (Hospitalization)
  Sender: FDA-Public Use
  Company Number: US-ELI_LILLY_AND_COMPANY-US200711004286

PATIENT
  Sex: Male

DRUGS (18)
  1. FORTEO [Suspect]
     Dosage: UNK, UNK
     Dates: start: 20051101
  2. ZYPREXA [Suspect]
     Dosage: 2.5 MG, UNK
  3. ACTOS [Concomitant]
     Dosage: 30 MG, DAILY (1/D)
  4. ATENOLOL [Concomitant]
     Dosage: 25 MG, DAILY (1/D)
  5. CELEBREX [Concomitant]
     Dosage: 200 MG, DAILY (1/D)
  6. DITROPAN /USA/ [Concomitant]
     Dosage: 2.5 MG, DAILY (1/D)
  7. KETOCONAZOLE [Concomitant]
     Dosage: 200 MG, 3/D
  8. LASIX [Concomitant]
     Dosage: 20 MG, DAILY (1/D)
  9. NEXIUM [Concomitant]
     Dosage: 40 MG, DAILY (1/D)
  10. PLAVIX [Concomitant]
     Dosage: 75 MG, DAILY (1/D)
  11. ULTRACET [Concomitant]
     Dosage: 37.5 MG, DAILY (1/D)
  12. WELLBUTRIN [Concomitant]
     Dosage: 150 MG, 2/D
  13. SYNTHROID [Concomitant]
     Dosage: 0.025 MG, DAILY (1/D)
  14. FLOMAX [Concomitant]
     Dosage: 0.4 MG, DAILY (1/D)
  15. GEODON [Concomitant]
     Dosage: 20 MG, 2/D
  16. LIPITOR [Concomitant]
     Dosage: 40 MG, DAILY (1/D)
  17. NIASPAN [Concomitant]
     Dosage: 500 MG, DAILY (1/D)
  18. RAMELTEON [Concomitant]
     Dosage: 8 MG, DAILY (1/D)

REACTIONS (3)
  - FALL [None]
  - HOSPITALISATION [None]
  - PNEUMONIA [None]
